FAERS Safety Report 13008421 (Version 1)
Quarter: 2016Q4

REPORT INFORMATION
  Report Type: Spontaneous
  Country: NL (occurrence: NL)
  Receive Date: 20161208
  Receipt Date: 20161208
  Transmission Date: 20170207
  Serious: Yes (Hospitalization)
  Sender: FDA-Public Use
  Company Number: NL-ASTRAZENECA-2016SF27445

PATIENT
  Age: 75 Year
  Sex: Female

DRUGS (7)
  1. MACROGOL [Concomitant]
     Active Substance: POLYETHYLENE GLYCOLS
     Dates: start: 20040304
  2. ACUZIDE [Concomitant]
     Dates: start: 20130326
  3. OMEPRAZOL [Suspect]
     Active Substance: OMEPRAZOLE
     Dosage: 1.0DF UNKNOWN
     Route: 048
  4. ACUPRIL [Concomitant]
     Dates: start: 20121112
  5. CALCI CHEW D3 [Concomitant]
     Active Substance: CALCIUM CARBONATE\CHOLECALCIFEROL
     Dates: start: 20150908
  6. PREDNISOLON [Concomitant]
     Active Substance: PREDNISOLONE
     Dosage: SANDOZ 10 MG DAILY
     Dates: start: 20151203
  7. MEBEVERINE [Concomitant]
     Active Substance: MEBEVERINE
     Dates: start: 20151203

REACTIONS (1)
  - Renal impairment [Unknown]
